FAERS Safety Report 9478267 (Version 1)
Quarter: 2013Q3

REPORT INFORMATION
  Report Type: Spontaneous
  Country: US (occurrence: US)
  Receive Date: 20130827
  Receipt Date: 20130827
  Transmission Date: 20140515
  Serious: Yes (Hospitalization)
  Sender: FDA-Public Use
  Company Number: US-JNJFOC-20130812431

PATIENT
  Sex: Male
  Weight: 81.65 kg

DRUGS (1)
  1. INVEGA SUSTENNA [Suspect]
     Indication: SCHIZOPHRENIA, PARANOID TYPE
     Route: 030

REACTIONS (8)
  - Psychiatric symptom [Unknown]
  - Abnormal behaviour [Unknown]
  - Sensory disturbance [Unknown]
  - Psychogenic pain disorder [Unknown]
  - Pseudologia [Unknown]
  - Muscle contractions involuntary [Unknown]
  - Muscle strain [Unknown]
  - Torticollis [Unknown]
